FAERS Safety Report 15077416 (Version 2)
Quarter: 2018Q3

REPORT INFORMATION
  Report Type: Spontaneous
  Country: US (occurrence: US)
  Receive Date: 20180627
  Receipt Date: 20180718
  Transmission Date: 20181010
  Serious: Yes (Other)
  Sender: FDA-Public Use
  Company Number: US-ELI_LILLY_AND_COMPANY-US201806007213

PATIENT
  Age: 79 Year
  Sex: Female

DRUGS (1)
  1. FORTEO [Suspect]
     Active Substance: TERIPARATIDE
     Indication: PRODUCT USED FOR UNKNOWN INDICATION
     Dosage: UNK, UNKNOWN
     Route: 065
     Dates: start: 20180202, end: 20180622

REACTIONS (18)
  - Tendon pain [Recovering/Resolving]
  - Musculoskeletal pain [Recovering/Resolving]
  - Discomfort [Unknown]
  - Asthenopia [Recovering/Resolving]
  - Musculoskeletal chest pain [Recovering/Resolving]
  - Furuncle [Recovered/Resolved]
  - Tachycardia [Unknown]
  - Cardiac disorder [Unknown]
  - Weight decreased [Recovering/Resolving]
  - Eye pain [Recovering/Resolving]
  - Decreased appetite [Not Recovered/Not Resolved]
  - Spinal fracture [Recovering/Resolving]
  - Blood pressure increased [Recovering/Resolving]
  - Skin laxity [Unknown]
  - Polyp [Recovered/Resolved]
  - Visual impairment [Recovering/Resolving]
  - Skin disorder [Recovering/Resolving]
  - Pain [Recovering/Resolving]

NARRATIVE: CASE EVENT DATE: 201802
